FAERS Safety Report 22914883 (Version 4)
Quarter: 2023Q4

REPORT INFORMATION
  Report Type: Spontaneous
  Country: US (occurrence: US)
  Receive Date: 20230907
  Receipt Date: 20231207
  Transmission Date: 20240109
  Serious: Yes (Other)
  Sender: FDA-Public Use
  Company Number: US-BRISTOL-MYERS SQUIBB COMPANY-2023-125478

PATIENT
  Age: 78 Year
  Sex: Female
  Weight: 47.17 kg

DRUGS (1)
  1. POMALYST [Suspect]
     Active Substance: POMALIDOMIDE
     Indication: Plasma cell myeloma
     Dosage: 3W, 1W OFF, DAILY FOR 21 DAYS
     Route: 048
     Dates: start: 20230401

REACTIONS (6)
  - Fatigue [Unknown]
  - Skin discolouration [Unknown]
  - Chest pain [Unknown]
  - Vagus nerve disorder [Unknown]
  - Pyrexia [Unknown]
  - Peripheral swelling [Unknown]
